FAERS Safety Report 7900638-0 (Version None)
Quarter: 2011Q4

REPORT INFORMATION
  Report Type: 
  Country: None (occurrence: None)
  Receive Date: 20111108
  Receipt Date: 20111031
  Transmission Date: 20120403
  Serious: Yes (Death, Other)
  Sender: FDA-Public Use
  Company Number: US-TEVA-307479USA

PATIENT
  Age: 68 Year
  Sex: Male

DRUGS (6)
  1. AMIODARONE HCL [Interacting]
     Route: 042
  2. COLCHICINE [Interacting]
     Dosage: Q 2-4H
     Route: 048
  3. TACROLIMUS [Suspect]
  4. COLCHICINE [Interacting]
     Route: 042
  5. DILTIAZEM HCL [Suspect]
  6. AMIODARONE HCL [Interacting]
     Dosage: 1200 MILLIGRAM;

REACTIONS (4)
  - TOXICITY TO VARIOUS AGENTS [None]
  - RENAL FAILURE [None]
  - CARDIAC ARREST [None]
  - THROMBOCYTOPENIA [None]
